FAERS Safety Report 16367280 (Version 4)
Quarter: 2019Q3

REPORT INFORMATION
  Report Type: Spontaneous
  Country: CA (occurrence: CA)
  Receive Date: 20190529
  Receipt Date: 20190911
  Transmission Date: 20191004
  Serious: Yes (Life-Threatening, Hospitalization, Disabling, Other)
  Sender: FDA-Public Use
  Company Number: CA-TEVA-2019-CA-1056078

PATIENT
  Age: 12 Day
  Sex: Male
  Weight: 3 kg

DRUGS (41)
  1. ACETAMINOPHEN AND CODEINE [Suspect]
     Active Substance: ACETAMINOPHEN\CODEINE PHOSPHATE
     Indication: MATERNAL EXPOSURE DURING BREAST FEEDING
     Route: 064
  2. LAMOTRIGINE. [Suspect]
     Active Substance: LAMOTRIGINE
     Indication: PRODUCT USED FOR UNKNOWN INDICATION
     Dosage: 250 MILLIGRAM DAILY;
     Route: 063
  3. ARIPIPRAZOLE. [Suspect]
     Active Substance: ARIPIPRAZOLE
     Indication: PRODUCT USED FOR UNKNOWN INDICATION
     Route: 064
  4. DOCUSATE [Suspect]
     Active Substance: DOCUSATE
     Indication: PRODUCT USED FOR UNKNOWN INDICATION
     Route: 063
  5. FOLIC ACID 1MG [Suspect]
     Active Substance: FOLIC ACID
     Indication: PRODUCT USED FOR UNKNOWN INDICATION
     Route: 063
  6. ACETAMINOPHEN AND CODEINE [Suspect]
     Active Substance: ACETAMINOPHEN\CODEINE PHOSPHATE
     Indication: PRODUCT USED FOR UNKNOWN INDICATION
     Route: 063
  7. SERTRALINE [Suspect]
     Active Substance: SERTRALINE HYDROCHLORIDE
     Indication: MATERNAL EXPOSURE DURING BREAST FEEDING
     Dosage: 100 MILLIGRAM DAILY;
     Route: 064
  8. ABILIFY [Suspect]
     Active Substance: ARIPIPRAZOLE
     Route: 064
  9. FOLIC ACID 1MG [Suspect]
     Active Substance: FOLIC ACID
     Indication: MATERNAL EXPOSURE DURING BREAST FEEDING
     Route: 064
  10. FOLIC ACID 1MG [Suspect]
     Active Substance: FOLIC ACID
     Indication: FOETAL EXPOSURE DURING PREGNANCY
  11. LEVOTHYROXINE. [Suspect]
     Active Substance: LEVOTHYROXINE
     Indication: MATERNAL EXPOSURE DURING BREAST FEEDING
     Dosage: 50 MICROGRAM DAILY;
     Route: 064
  12. MULTIVITAMINE(S) [Suspect]
     Active Substance: VITAMINS
     Route: 064
  13. LAMOTRIGINE. [Suspect]
     Active Substance: LAMOTRIGINE
     Indication: MATERNAL EXPOSURE DURING BREAST FEEDING
     Dosage: 250 MILLIGRAM DAILY;
     Route: 064
  14. LAMOTRIGINE. [Suspect]
     Active Substance: LAMOTRIGINE
     Indication: BIPOLAR DISORDER
  15. NAPROXEN. [Suspect]
     Active Substance: NAPROXEN
     Indication: MATERNAL EXPOSURE DURING BREAST FEEDING
     Route: 064
  16. SERTRALINE [Suspect]
     Active Substance: SERTRALINE HYDROCHLORIDE
     Indication: FOETAL EXPOSURE DURING PREGNANCY
     Route: 063
  17. SERTRALINE [Suspect]
     Active Substance: SERTRALINE HYDROCHLORIDE
     Route: 064
  18. ABILIFY [Suspect]
     Active Substance: ARIPIPRAZOLE
     Route: 064
  19. ARIPIPRAZOLE. [Suspect]
     Active Substance: ARIPIPRAZOLE
     Indication: MATERNAL EXPOSURE DURING BREAST FEEDING
     Route: 063
  20. DOCUSATE SODIUM. [Suspect]
     Active Substance: DOCUSATE SODIUM
     Indication: MATERNAL EXPOSURE DURING BREAST FEEDING
     Route: 064
  21. ABILIFY [Suspect]
     Active Substance: ARIPIPRAZOLE
     Indication: FOETAL EXPOSURE DURING PREGNANCY
     Route: 064
  22. ARIPIPRAZOLE. [Suspect]
     Active Substance: ARIPIPRAZOLE
     Indication: FOETAL EXPOSURE DURING PREGNANCY
  23. MULTIVITAMINE(S) [Suspect]
     Active Substance: VITAMINS
     Indication: FOETAL EXPOSURE DURING PREGNANCY
     Route: 063
  24. DEXPANTHENOL/ERGOCALCIFEROL/FOLIC ACID/NICOTINAMIDE/RIBOFLAVIN/THIAMIE [Suspect]
     Active Substance: VITAMINS
     Indication: FOETAL EXPOSURE DURING PREGNANCY
     Route: 064
  25. DEXPANTHENOL/ERGOCALCIFEROL/FOLIC ACID/NICOTINAMIDE/RIBOFLAVIN/THIAMIE [Suspect]
     Active Substance: VITAMINS
     Route: 063
  26. DOCUSATE SODIUM. [Suspect]
     Active Substance: DOCUSATE SODIUM
     Indication: PRODUCT USED FOR UNKNOWN INDICATION
     Route: 063
  27. SERTRALINE [Suspect]
     Active Substance: SERTRALINE HYDROCHLORIDE
     Indication: PRODUCT USED FOR UNKNOWN INDICATION
     Dosage: 100 MILLIGRAM DAILY;
     Route: 063
  28. LEVOTHYROXINE. [Suspect]
     Active Substance: LEVOTHYROXINE
     Indication: PRODUCT USED FOR UNKNOWN INDICATION
     Route: 063
  29. FOLIC ACID. [Suspect]
     Active Substance: FOLIC ACID
     Route: 063
  30. NAPROXEN. [Suspect]
     Active Substance: NAPROXEN
     Indication: FOETAL EXPOSURE DURING PREGNANCY
  31. ABILIFY [Suspect]
     Active Substance: ARIPIPRAZOLE
     Route: 064
  32. DOCUSATE SODIUM. [Suspect]
     Active Substance: DOCUSATE SODIUM
     Indication: FOETAL EXPOSURE DURING PREGNANCY
     Route: 063
  33. LAMOTRIGINE. [Suspect]
     Active Substance: LAMOTRIGINE
     Indication: FOETAL EXPOSURE DURING PREGNANCY
  34. NAPROXEN. [Suspect]
     Active Substance: NAPROXEN
     Indication: PRODUCT USED FOR UNKNOWN INDICATION
     Route: 063
  35. ABILIFY [Suspect]
     Active Substance: ARIPIPRAZOLE
     Indication: PRODUCT USED FOR UNKNOWN INDICATION
     Dosage: 15 MILLIGRAM DAILY;
     Route: 064
  36. ARIPIPRAZOLE. [Suspect]
     Active Substance: ARIPIPRAZOLE
     Indication: BIPOLAR DISORDER
  37. ACETAMINOPHEN AND CODEINE [Suspect]
     Active Substance: ACETAMINOPHEN\CODEINE PHOSPHATE
     Indication: FOETAL EXPOSURE DURING PREGNANCY
  38. ABILIFY [Suspect]
     Active Substance: ARIPIPRAZOLE
     Indication: MATERNAL EXPOSURE DURING BREAST FEEDING
     Dosage: 15 MILLIGRAM DAILY;
     Route: 063
  39. ABILIFY [Suspect]
     Active Substance: ARIPIPRAZOLE
     Route: 064
  40. LEVOTHYROXINE. [Suspect]
     Active Substance: LEVOTHYROXINE
     Indication: FOETAL EXPOSURE DURING PREGNANCY
     Route: 064
  41. FOLIC ACID. [Suspect]
     Active Substance: FOLIC ACID
     Indication: FOETAL EXPOSURE DURING PREGNANCY
     Route: 064

REACTIONS (31)
  - Acute kidney injury [Recovered/Resolved]
  - Moaning [Recovered/Resolved]
  - Blood glucose increased [Recovered/Resolved]
  - Mucosal disorder [Recovered/Resolved]
  - Partial seizures [Recovered/Resolved]
  - Skin discolouration [Recovered/Resolved]
  - Acidosis [Recovered/Resolved]
  - Foetal exposure during pregnancy [Recovered/Resolved]
  - Maternal exposure during breast feeding [Recovered/Resolved]
  - Hyponatraemia [Recovered/Resolved]
  - Gangrene [Recovered/Resolved]
  - Weight decreased [Recovered/Resolved]
  - Alanine aminotransferase increased [Recovered/Resolved]
  - Necrosis [Recovered/Resolved]
  - Pallor [Recovered/Resolved]
  - Somnolence [Recovered/Resolved]
  - Gangrene neonatal [Recovered/Resolved]
  - Hypernatraemia [Recovered/Resolved]
  - Irritability [Recovered/Resolved]
  - Peripheral artery thrombosis [Recovered/Resolved]
  - Petechiae [Recovered/Resolved]
  - Rhabdomyolysis [Recovered/Resolved]
  - Hypovolaemic shock [Recovered/Resolved]
  - Dehydration [Recovered/Resolved]
  - Livedo reticularis [Recovered/Resolved]
  - Skin turgor decreased [Recovered/Resolved]
  - Hyporesponsive to stimuli [Recovered/Resolved]
  - Disseminated intravascular coagulation [Recovered/Resolved]
  - Hypokinesia [Recovered/Resolved]
  - Weight decrease neonatal [Recovered/Resolved]
  - Exposure via breast milk [Recovered/Resolved]
